FAERS Safety Report 5630238-7 (Version None)
Quarter: 2008Q1

REPORT INFORMATION
  Report Type: 
  Country: None (occurrence: None)
  Receive Date: 20080215
  Receipt Date: 20071127
  Transmission Date: 20080703
  Serious: Yes (Hospitalization, Other)
  Sender: FDA-Public Use
  Company Number: 07-511

PATIENT
  Age: 72 Year
  Sex: Female
  Weight: 54.4316 kg

DRUGS (8)
  1. ALEVE [Suspect]
     Indication: ARTHRITIS
     Dosage: 1320 MG, DAILY, ORAL
     Route: 048
     Dates: start: 20071024, end: 20071119
  2. AVAPRO [Concomitant]
  3. CARTIA XT [Concomitant]
  4. PLAVIX [Concomitant]
  5. HYDRO CHLOROX [Concomitant]
  6. ECOTRIN [Concomitant]
  7. SYNTHROID [Concomitant]
  8. NEXIUM [Concomitant]

REACTIONS (7)
  - DYSPNOEA [None]
  - FAECES DISCOLOURED [None]
  - FATIGUE [None]
  - HAEMATOCRIT DECREASED [None]
  - HAEMOGLOBIN DECREASED [None]
  - MYALGIA [None]
  - TINNITUS [None]
